FAERS Safety Report 4319920-1 (Version None)
Quarter: 2004Q1

REPORT INFORMATION
  Report Type: 
  Country: None (occurrence: None)
  Receive Date: 20040316
  Receipt Date: 20040310
  Transmission Date: 20041129
  Serious: Yes (Death)
  Sender: FDA-Public Use
  Company Number: USA-2003-0008113

PATIENT
  Age: 52 Year
  Sex: Female
  Weight: 115.2 kg

DRUGS (7)
  1. MORPHINE SULFATE [Suspect]
  2. LORCET (PARACETAMOL, HYDROCHLORIDE BITARTRATE) [Suspect]
  3. CAFFEINE (CAFFEINE) [Suspect]
  4. METOPROLOL SUCCINATE [Suspect]
  5. DIAZEPAM [Suspect]
  6. OXAZEPAM [Suspect]
  7. TEMAZEPAM [Suspect]

REACTIONS (9)
  - ACCIDENTAL OVERDOSE [None]
  - ARTERIOSCLEROSIS [None]
  - CARDIO-RESPIRATORY ARREST [None]
  - CHEST INJURY [None]
  - HAEMORRHAGE [None]
  - MULTIPLE DRUG OVERDOSE [None]
  - OBESITY [None]
  - PLEURAL DISORDER [None]
  - PURULENCE [None]
